FAERS Safety Report 4366421-0 (Version None)
Quarter: 2004Q2

REPORT INFORMATION
  Report Type: 
  Country: None (occurrence: None)
  Receive Date: 20040527
  Receipt Date: 20040317
  Transmission Date: 20050107
  Serious: No
  Sender: FDA-Public Use
  Company Number: US-BRISTOL-MYERS SQUIBB COMPANY-12535951

PATIENT
  Age: 60 Year
  Sex: Male

DRUGS (5)
  1. ERBITUX [Suspect]
     Indication: COLORECTAL CANCER METASTATIC
     Dosage: 1ST INFUSION: 800 MG ADMINISTERED OVER 5 HOURS 2ND + 3RD INFUSIONS: 200 MG OVER 2.5 HOURS
     Route: 042
  2. CPT-11 [Concomitant]
     Route: 042
  3. BENADRYL [Concomitant]
     Indication: PREMEDICATION
     Route: 042
  4. ZANTAC [Concomitant]
     Indication: PREMEDICATION
     Route: 042
  5. DECADRON [Concomitant]
     Indication: PREMEDICATION
     Dosage: 1ST INFUSION ONLY
     Route: 042

REACTIONS (1)
  - DERMATITIS [None]
